FAERS Safety Report 11416328 (Version 1)
Quarter: 2015Q3

REPORT INFORMATION
  Report Type: Spontaneous
  Country: US (occurrence: US)
  Receive Date: 20150825
  Receipt Date: 20150825
  Transmission Date: 20151125
  Serious: Yes (Death)
  Sender: FDA-Public Use
  Company Number: US-PFIZER INC-2015279287

PATIENT
  Age: 66 Year
  Sex: Female

DRUGS (1)
  1. TORISEL [Suspect]
     Active Substance: TEMSIROLIMUS
     Indication: COLON CANCER METASTATIC
     Dosage: 25 MG, UNK

REACTIONS (3)
  - Product use issue [Unknown]
  - Colon cancer metastatic [Fatal]
  - Disease progression [Fatal]
